FAERS Safety Report 13553971 (Version 1)
Quarter: 2017Q2

REPORT INFORMATION
  Report Type: Spontaneous
  Country: IT (occurrence: IT)
  Receive Date: 20170517
  Receipt Date: 20170517
  Transmission Date: 20170830
  Serious: Yes (Hospitalization, Other)
  Sender: FDA-Public Use
  Company Number: IT-GLAXOSMITHKLINE-IT2017GSK072243

PATIENT
  Weight: 85 kg

DRUGS (1)
  1. VOLTAREN [Suspect]
     Active Substance: DICLOFENAC SODIUM
     Indication: ABDOMINAL PAIN
     Dosage: 150 MG, QD
     Route: 048
     Dates: start: 20170501, end: 20170504

REACTIONS (1)
  - Acute kidney injury [Recovered/Resolved]
